FAERS Safety Report 6706251-5 (Version None)
Quarter: 2010Q2

REPORT INFORMATION
  Report Type: 
  Country: None (occurrence: None)
  Receive Date: 20100503
  Receipt Date: 20100419
  Transmission Date: 20101027
  Serious: Yes (Other)
  Sender: FDA-Public Use
  Company Number: DE-PFIZER INC-2010031567

PATIENT
  Age: 37 Year
  Sex: Female
  Weight: 67 kg

DRUGS (11)
  1. LYRICA [Suspect]
     Indication: TRIGEMINAL NEURALGIA
     Dosage: 25 MG, 1X/DAY
     Route: 048
     Dates: start: 20100226, end: 20100303
  2. LYRICA [Interacting]
     Dosage: 50 MG, 1X/DAY
     Route: 048
     Dates: start: 20100304, end: 20100306
  3. GABAPENTIN [Interacting]
     Dosage: 300 MG, 3X/DAY
     Route: 048
     Dates: start: 20090701
  4. NEURONTIN [Concomitant]
     Dosage: UNK
  5. METHOTREXATE [Concomitant]
     Dosage: 10 MG, WEEKLY
     Dates: start: 20070101
  6. HUMIRA [Concomitant]
     Dosage: 40 MG EVERY 14 DAYS
     Dates: start: 20080101
  7. TRIAMHEXAL [Concomitant]
     Dosage: UNK
  8. BECLOMETASONE [Concomitant]
     Route: 045
  9. CLARITHROMYCIN [Concomitant]
  10. ASPIRIN [Concomitant]
     Dosage: 100 MG, 1X/DAY
     Route: 048
     Dates: start: 20060101
  11. PREDNISOLON [Concomitant]
     Dosage: AVERAGE DOSE 7.5 MG DAILY
     Dates: start: 20070101

REACTIONS (14)
  - CARDIOVASCULAR INSUFFICIENCY [None]
  - DEPRESSION [None]
  - DRUG INTERACTION [None]
  - DRUG TOXICITY [None]
  - ERYTHEMA [None]
  - FATIGUE [None]
  - FEELING DRUNK [None]
  - GAIT DISTURBANCE [None]
  - RESTLESSNESS [None]
  - SLEEP DISORDER [None]
  - TREMOR [None]
  - VISION BLURRED [None]
  - VISUAL IMPAIRMENT [None]
  - WITHDRAWAL SYNDROME [None]
